FAERS Safety Report 7133320-0 (Version None)
Quarter: 2010Q4

REPORT INFORMATION
  Report Type: 
  Country: None (occurrence: None)
  Receive Date: 20101117
  Receipt Date: 20101102
  Transmission Date: 20110411
  Serious: Yes (Other)
  Sender: FDA-Public Use
  Company Number: AUR-APL-2010-02671

PATIENT
  Age: 84 Year
  Sex: Female
  Weight: 50.3493 kg

DRUGS (3)
  1. METOPROLOL SUCCINATE [Suspect]
     Indication: CARDIAC FIBRILLATION
     Dosage: 1 TAB - BID - ORAL
     Route: 048
     Dates: start: 20090801
  2. DIGOXIN [Suspect]
     Indication: CARDIAC FIBRILLATION
     Dosage: 0.125MG - DAILY
     Dates: start: 20090801
  3. NASONEX [Concomitant]

REACTIONS (4)
  - BLOOD POTASSIUM INCREASED [None]
  - BLOOD SODIUM INCREASED [None]
  - GASTRIC DISORDER [None]
  - WHITE BLOOD CELL COUNT DECREASED [None]
